FAERS Safety Report 6751431-6 (Version None)
Quarter: 2010Q2

REPORT INFORMATION
  Report Type: 
  Country: None (occurrence: None)
  Receive Date: 20100602
  Receipt Date: 20090810
  Transmission Date: 20101027
  Serious: Yes (Death, Other)
  Sender: FDA-Public Use
  Company Number: IT-ROCHE-649584

PATIENT
  Age: 43 Year
  Sex: Male

DRUGS (8)
  1. GANCICLOVIR SODIUM [Suspect]
     Route: 065
  2. GANCICLOVIR SODIUM [Suspect]
     Dosage: ROUTE; ORAL.
     Route: 065
     Dates: start: 20070701
  3. GANCICLOVIR SODIUM [Suspect]
     Dosage: ROUTE; ENDOVENOUS.
     Route: 065
  4. FOSCARNET [Suspect]
     Route: 065
     Dates: start: 20001201
  5. FOSCARNET [Suspect]
     Route: 065
     Dates: start: 20070701
  6. FOSCARNET [Suspect]
     Route: 065
     Dates: start: 20070101
  7. ALEMTUZUMAB [Suspect]
     Indication: PROPHYLAXIS AGAINST TRANSPLANT REJECTION
     Dosage: BEFORE TRANSPLANT AFTER REPERFUSION AT DAY 3 AND AT DAY 7.
     Route: 065
     Dates: start: 20001201
  8. TACROLIMUS [Suspect]
     Indication: PROPHYLAXIS AGAINST TRANSPLANT REJECTION
     Dosage: TORUGH BLOOD LEVEL OF 10-15 NG/ML DURING THE FIRST THREE MONTHS FOLLOWED BY 8-12 NG/ML, THEREAFTER.
     Route: 065

REACTIONS (5)
  - CYTOMEGALOVIRUS INFECTION [None]
  - GENERAL PHYSICAL HEALTH DETERIORATION [None]
  - HUMAN HERPESVIRUS 6 INFECTION [None]
  - LUNG INFECTION PSEUDOMONAL [None]
  - NEUTROPENIA [None]
